FAERS Safety Report 13256473 (Version 1)
Quarter: 2017Q1

REPORT INFORMATION
  Report Type: Spontaneous
  Country: US (occurrence: US)
  Receive Date: 20170221
  Receipt Date: 20170221
  Transmission Date: 20170428
  Serious: No
  Sender: FDA-Public Use
  Company Number: US-CELGENEUS-USA-2017024733

PATIENT
  Sex: Female

DRUGS (1)
  1. OTEZLA [Suspect]
     Active Substance: APREMILAST
     Indication: PSORIATIC ARTHROPATHY
     Route: 048

REACTIONS (6)
  - Weight decreased [Unknown]
  - Malaise [Unknown]
  - Hot flush [Unknown]
  - Diarrhoea [Unknown]
  - Osteoporosis [Unknown]
  - Dyspepsia [Unknown]
